FAERS Safety Report 9239483 (Version 1)
Quarter: 2013Q2

REPORT INFORMATION
  Report Type: Spontaneous
  Country: US (occurrence: US)
  Receive Date: 20130418
  Receipt Date: 20130418
  Transmission Date: 20140414
  Serious: No
  Sender: FDA-Public Use
  Company Number: US-ASTRAZENECA-2013SE21921

PATIENT
  Age: 52 Year
  Sex: Male

DRUGS (2)
  1. IMDUR [Suspect]
     Indication: CHEST PAIN
     Route: 048
  2. BRILINTA [Suspect]
     Indication: ANTICOAGULANT THERAPY
     Route: 048

REACTIONS (2)
  - Somnolence [Unknown]
  - Dizziness [Unknown]
